FAERS Safety Report 13567076 (Version 1)
Quarter: 2017Q2

REPORT INFORMATION
  Report Type: Spontaneous
  Country: US (occurrence: US)
  Receive Date: 20170522
  Receipt Date: 20170522
  Transmission Date: 20170830
  Serious: No
  Sender: FDA-Public Use
  Company Number: US-009507513-1705USA008768

PATIENT

DRUGS (4)
  1. TRULICITY [Suspect]
     Active Substance: DULAGLUTIDE
  2. TRESIBA [Suspect]
     Active Substance: INSULIN DEGLUDEC
  3. JANUVIA [Suspect]
     Active Substance: SITAGLIPTIN PHOSPHATE
     Route: 048
  4. NOVOLOG [Suspect]
     Active Substance: INSULIN ASPART

REACTIONS (1)
  - Glycosylated haemoglobin increased [Unknown]
